FAERS Safety Report 10089678 (Version 1)
Quarter: 2014Q2

REPORT INFORMATION
  Report Type: Spontaneous
  Country: US (occurrence: US)
  Receive Date: 20140421
  Receipt Date: 20140421
  Transmission Date: 20141212
  Serious: No
  Sender: FDA-Public Use
  Company Number: US-PFIZER INC-2014108838

PATIENT
  Sex: Female

DRUGS (2)
  1. MEDROXYPROGESTERONE ACETATE [Suspect]
     Dosage: 2.5 MG, ALTERNATE DAY
  2. ESTRADIOL [Suspect]
     Dosage: 0.5 MG, DAILY

REACTIONS (2)
  - Irritability [Unknown]
  - Fatigue [Unknown]
